FAERS Safety Report 19735489 (Version 22)
Quarter: 2025Q4

REPORT INFORMATION
  Report Type: Spontaneous
  Country: CA (occurrence: CA)
  Receive Date: 20210823
  Receipt Date: 20251103
  Transmission Date: 20260118
  Serious: Yes (Hospitalization, Other)
  Sender: PFIZER
  Company Number: CA-PFIZER INC-2020493705

PATIENT
  Age: 68 Year
  Sex: Male
  Weight: 82 kg

DRUGS (47)
  1. RUXIENCE [Suspect]
     Active Substance: RITUXIMAB-PVVR
     Indication: Antisynthetase syndrome
     Dosage: 1000 MG, DAY 1 AND DAY 15
     Route: 042
     Dates: start: 20210119, end: 20210203
  2. RUXIENCE [Suspect]
     Active Substance: RITUXIMAB-PVVR
     Dosage: 1000 MG, DAY 1 AND DAY 15
     Route: 042
     Dates: start: 20210203
  3. RUXIENCE [Suspect]
     Active Substance: RITUXIMAB-PVVR
     Dosage: 500 MG, DAY 1 AND DAY 15, (PT RECEIVED 1000 MG ON 02SEP2021)
     Route: 042
     Dates: start: 20210818, end: 20210902
  4. RUXIENCE [Suspect]
     Active Substance: RITUXIMAB-PVVR
     Dosage: 1000 MG, DAY 1 AND DAY 15
     Route: 042
     Dates: start: 20210902
  5. RUXIENCE [Suspect]
     Active Substance: RITUXIMAB-PVVR
     Dosage: 500 MG, DAY 1 AND DAY 15
     Route: 042
     Dates: start: 20220127
  6. RUXIENCE [Suspect]
     Active Substance: RITUXIMAB-PVVR
     Dosage: 500 MG, DAY 1 AND DAY 15
     Route: 042
     Dates: start: 20220127, end: 20220309
  7. RUXIENCE [Suspect]
     Active Substance: RITUXIMAB-PVVR
     Dosage: 1000 MG, DAY 1 AND DAY 15 (ALSO REPORTED)
     Route: 042
     Dates: start: 20220127
  8. RUXIENCE [Suspect]
     Active Substance: RITUXIMAB-PVVR
     Dosage: 500 MG. DAY 1 AND DAY 15
     Route: 042
     Dates: start: 20220309
  9. RUXIENCE [Suspect]
     Active Substance: RITUXIMAB-PVVR
     Dosage: 500 MG, DAY 1 AND DAY 15
     Route: 042
     Dates: start: 20220915
  10. RUXIENCE [Suspect]
     Active Substance: RITUXIMAB-PVVR
     Dosage: 500 MG, DAY 1 AND DAY 15
     Route: 042
     Dates: start: 20220915, end: 20220929
  11. RUXIENCE [Suspect]
     Active Substance: RITUXIMAB-PVVR
     Dosage: 1000 MG, DAY 1 AND DAY 15 (ALSO REPORTED)
     Route: 042
     Dates: start: 20220915
  12. RUXIENCE [Suspect]
     Active Substance: RITUXIMAB-PVVR
     Dosage: 500 MG, DAY 1 AND DAY 15
     Route: 042
     Dates: start: 20220929
  13. RUXIENCE [Suspect]
     Active Substance: RITUXIMAB-PVVR
     Dosage: 500 MG, DAY 1 AND DAY 15
     Route: 042
     Dates: start: 20230413
  14. RUXIENCE [Suspect]
     Active Substance: RITUXIMAB-PVVR
     Dosage: 500 MG, DAY 1 AND DAY 15
     Route: 042
     Dates: start: 20230413, end: 20230428
  15. RUXIENCE [Suspect]
     Active Substance: RITUXIMAB-PVVR
     Dosage: 500 MG, DAY 1 AND DAY 15 (DAY1)
     Route: 042
     Dates: start: 20231129, end: 20231213
  16. RUXIENCE [Suspect]
     Active Substance: RITUXIMAB-PVVR
     Dosage: 500 MG, DAY 1 AND DAY 15
     Route: 042
     Dates: start: 20231213
  17. RUXIENCE [Suspect]
     Active Substance: RITUXIMAB-PVVR
     Dosage: 500 MG, DAY 1 RETREATMENT (DAY 1 AND DAY 15)
     Route: 042
     Dates: start: 20240812, end: 20240812
  18. RUXIENCE [Suspect]
     Active Substance: RITUXIMAB-PVVR
     Dosage: 500 MG, (DAY 1 AND DAY 15)
     Route: 042
     Dates: start: 20240826, end: 20240826
  19. RUXIENCE [Suspect]
     Active Substance: RITUXIMAB-PVVR
     Dosage: 500 MG, EVERY 8 MONTHS, (DAY 1 AND DAY 15)
     Route: 042
     Dates: start: 20250408
  20. RUXIENCE [Suspect]
     Active Substance: RITUXIMAB-PVVR
     Dosage: 500 MG, EVERY 8 MONTHS, (DAY 1 DAY 15)
     Route: 042
     Dates: start: 20250421
  21. RUXIENCE [Suspect]
     Active Substance: RITUXIMAB-PVVR
     Dosage: 500 MG, DAY 1 AND DAY 15, EVERY 6 TO 8 MONTHS
     Route: 042
     Dates: start: 20251016
  22. ACETAMINOPHEN [Concomitant]
     Active Substance: ACETAMINOPHEN
     Dosage: 650 MG
     Route: 048
  23. ALENDRONATE [Concomitant]
     Active Substance: ALENDRONATE SODIUM
     Dosage: UNK
  24. ALENDRONATE [Concomitant]
     Active Substance: ALENDRONATE SODIUM
     Dosage: 70 MG, WEEKLY
     Route: 065
  25. BISOPROLOL [Concomitant]
     Active Substance: BISOPROLOL
     Indication: Hypertension
     Dosage: UNK
  26. COVID-19 VACCINE [Concomitant]
     Dosage: UNK, SINGLE
  27. DIPHENHYDRAMINE [Concomitant]
     Active Substance: DIPHENHYDRAMINE
     Dosage: 50 MG
     Route: 048
  28. FELODIPINE [Concomitant]
     Active Substance: FELODIPINE
     Indication: Hypertension
     Dosage: UNK
  29. FELODIPINE [Concomitant]
     Active Substance: FELODIPINE
     Dosage: 10 MG, 1X/DAY
     Route: 065
  30. IMURAN [Concomitant]
     Active Substance: AZATHIOPRINE
     Dosage: UNK
  31. IMURAN [Concomitant]
     Active Substance: AZATHIOPRINE
     Dosage: 20 MG, 1X/DAY
     Route: 065
  32. JARDIANCE [Concomitant]
     Active Substance: EMPAGLIFLOZIN
     Dosage: UNK
  33. JARDIANCE [Concomitant]
     Active Substance: EMPAGLIFLOZIN
     Dosage: 25 MG, 1X/DAY
     Route: 065
  34. METFORMIN [Concomitant]
     Active Substance: METFORMIN HYDROCHLORIDE
     Dosage: UNK
  35. METFORMIN [Concomitant]
     Active Substance: METFORMIN HYDROCHLORIDE
     Dosage: 1000 MG, 2X/DAY
     Route: 065
  36. METHOTREXATE [Concomitant]
     Active Substance: METHOTREXATE
     Dosage: 25 MG, WEEKLY
     Route: 058
  37. METHOTREXATE [Concomitant]
     Active Substance: METHOTREXATE
     Dosage: UNK
  38. METHOTREXATE [Concomitant]
     Active Substance: METHOTREXATE
     Dosage: 25 MG, WEEKLY
     Route: 058
  39. METHYLPREDNISOLONE [Concomitant]
     Active Substance: METHYLPREDNISOLONE
     Dosage: 100 MG
     Route: 042
  40. PANTOPRAZOLE [Concomitant]
     Active Substance: PANTOPRAZOLE
     Dosage: UNK
  41. PANTOPRAZOLE [Concomitant]
     Active Substance: PANTOPRAZOLE
     Dosage: 40 MG, WEEKLY
     Route: 065
  42. PREDNISONE [Concomitant]
     Active Substance: PREDNISONE
     Dosage: UNK
  43. PREDNISONE [Concomitant]
     Active Substance: PREDNISONE
     Dosage: 20 MG, 1X/DAY (CURRENT DOSE 20MG THEN TITRATING TOMORROW. )
     Route: 065
  44. SULFATRIM [Concomitant]
     Active Substance: SULFAMETHOXAZOLE\TRIMETHOPRIM
     Dosage: UNK
  45. SULFATRIM [Concomitant]
     Active Substance: SULFAMETHOXAZOLE\TRIMETHOPRIM
     Dosage: 1 DF 800/160 MG (MONDAY-WEDNESDAY-FRIDAY
     Route: 065
  46. VALSARTAN [Concomitant]
     Active Substance: VALSARTAN
     Indication: Hypertension
     Dosage: UNK
  47. VALSARTAN [Concomitant]
     Active Substance: VALSARTAN
     Dosage: 160 MG, 1X/DAY

REACTIONS (28)
  - COVID-19 [Recovering/Resolving]
  - Condition aggravated [Unknown]
  - Cataract [Unknown]
  - Oral infection [Unknown]
  - Therapeutic response delayed [Unknown]
  - C-reactive protein increased [Unknown]
  - Blood creatine phosphokinase increased [Unknown]
  - Haemoglobin decreased [Unknown]
  - Muscular weakness [Unknown]
  - Carpal tunnel syndrome [Unknown]
  - Arthralgia [Unknown]
  - Asthenia [Unknown]
  - Mobility decreased [Unknown]
  - Weight decreased [Unknown]
  - Eye disorder [Unknown]
  - Pain [Not Recovered/Not Resolved]
  - Gait disturbance [Not Recovered/Not Resolved]
  - Blood pressure fluctuation [Unknown]
  - Fatigue [Recovering/Resolving]
  - Hypertension [Unknown]
  - Nasopharyngitis [Recovering/Resolving]
  - Weight increased [Unknown]
  - Blood immunoglobulin M decreased [Unknown]
  - Blood creatinine decreased [Unknown]
  - Drug ineffective for unapproved indication [Unknown]
  - Drug effective for unapproved indication [Unknown]
  - Inappropriate schedule of product administration [Unknown]
  - Off label use [Unknown]

NARRATIVE: CASE EVENT DATE: 20210101
